FAERS Safety Report 9384701 (Version 1)
Quarter: 2013Q3

REPORT INFORMATION
  Report Type: Report from Study
  Country: FR (occurrence: FR)
  Receive Date: 20130705
  Receipt Date: 20130705
  Transmission Date: 20140515
  Serious: Yes (Other)
  Sender: FDA-Public Use
  Company Number: FR-BAYER-2013-081206

PATIENT
  Age: 76 Year
  Sex: Male

DRUGS (4)
  1. REGORAFENIB [Suspect]
     Indication: COLORECTAL CANCER METASTATIC
     Dosage: 120 MG, UNK
     Dates: start: 20130529, end: 20130618
  2. LYRICA [Concomitant]
     Dosage: UNK
     Dates: end: 20130618
  3. FENTANYL [Concomitant]
     Indication: PAIN
     Dosage: UNK
     Dates: start: 20130618
  4. OXYCONTIN [Concomitant]
     Dosage: 40 MG, BID
     Dates: start: 20130523

REACTIONS (3)
  - Confusional state [None]
  - Thrombocytopenia [None]
  - Asthenia [None]
